FAERS Safety Report 18342397 (Version 1)
Quarter: 2020Q4

REPORT INFORMATION
  Report Type: Spontaneous
  Country: TR (occurrence: TR)
  Receive Date: 20201005
  Receipt Date: 20201005
  Transmission Date: 20210113
  Serious: Yes (Other)
  Sender: FDA-Public Use
  Company Number: TR-GLAXOSMITHKLINE-TR2020TRK188500

PATIENT
  Age: 57 Year
  Sex: Female

DRUGS (6)
  1. PK-MERZ [Concomitant]
     Active Substance: AMANTADINE
     Indication: PARKINSON^S DISEASE
     Dosage: 100 MG
  2. DOPALEVO [Concomitant]
     Active Substance: CARBIDOPA\ENTACAPONE\LEVODOPA
     Indication: PARKINSON^S DISEASE
     Dosage: UNK, 125/ 31.25/200 MG
  3. REQUIP XL [Suspect]
     Active Substance: ROPINIROLE HYDROCHLORIDE
     Indication: PARKINSON^S DISEASE
     Dosage: 2 MG, BID
  4. REQUIP XL [Suspect]
     Active Substance: ROPINIROLE HYDROCHLORIDE
     Dosage: 8 MG, BID
  5. MADOPAR [Concomitant]
     Active Substance: BENSERAZIDE HYDROCHLORIDE\LEVODOPA
     Indication: PARKINSON^S DISEASE
     Dosage: 125 MG
  6. DOPADEX [Concomitant]
     Indication: PARKINSON^S DISEASE
     Dosage: UNK, 25/100 MG

REACTIONS (4)
  - Product supply issue [Unknown]
  - Parkinsonian crisis [Unknown]
  - Product dose omission issue [Not Recovered/Not Resolved]
  - Tremor [Not Recovered/Not Resolved]
